FAERS Safety Report 21209069 (Version 6)
Quarter: 2023Q1

REPORT INFORMATION
  Report Type: Report from Study
  Country: US (occurrence: US)
  Receive Date: 20220812
  Receipt Date: 20230217
  Transmission Date: 20230418
  Serious: Yes (Life-Threatening, Hospitalization, Disabling, Other)
  Sender: FDA-Public Use
  Company Number: US-ABBVIE-22K-163-4501709-00

PATIENT
  Age: 63 Year
  Sex: Female
  Weight: 77 kg

DRUGS (6)
  1. HUMIRA [Suspect]
     Active Substance: ADALIMUMAB
     Indication: Rheumatoid arthritis
     Dosage: START DATE : 2017 OR 2018?LAST ADMIN DATE: 2022
     Route: 058
  2. HUMIRA [Suspect]
     Active Substance: ADALIMUMAB
     Dosage: FIRST ADMINISTRATION DATE :2022
     Route: 058
  3. LOSARTAN [Concomitant]
     Active Substance: LOSARTAN
     Indication: Blood pressure measurement
  4. PREDNISONE [Suspect]
     Active Substance: PREDNISONE
     Indication: Product used for unknown indication
     Route: 065
  5. LEVAQUIN [Suspect]
     Active Substance: LEVOFLOXACIN
     Indication: Product used for unknown indication
     Route: 065
  6. CIPRO [Suspect]
     Active Substance: CIPROFLOXACIN HYDROCHLORIDE
     Indication: Diverticulitis
     Route: 065

REACTIONS (35)
  - Clostridium difficile infection [Unknown]
  - Cerebrospinal fluid leakage [Unknown]
  - Neoplasm [Recovered/Resolved]
  - Neck surgery [Recovering/Resolving]
  - Shoulder arthroplasty [Recovered/Resolved]
  - Anxiety [Not Recovered/Not Resolved]
  - Influenza [Recovered/Resolved]
  - Intentional product misuse [Unknown]
  - Paranasal sinus hypersecretion [Unknown]
  - Stress [Unknown]
  - Acrochordon [Recovered/Resolved]
  - Melanocytic naevus [Not Recovered/Not Resolved]
  - Dizziness [Not Recovered/Not Resolved]
  - Nasopharyngitis [Recovered/Resolved]
  - Deafness unilateral [Not Recovered/Not Resolved]
  - Sinusitis [Recovered/Resolved]
  - Vertigo [Not Recovered/Not Resolved]
  - Oral herpes [Recovered/Resolved]
  - Rotator cuff syndrome [Unknown]
  - Weight increased [Not Recovered/Not Resolved]
  - Benign bone neoplasm [Recovered/Resolved]
  - Balance disorder [Not Recovered/Not Resolved]
  - Pruritus [Recovered/Resolved]
  - Hypophagia [Recovered/Resolved]
  - Tinnitus [Not Recovered/Not Resolved]
  - Acrochordon [Not Recovered/Not Resolved]
  - Meningitis [Unknown]
  - Lip neoplasm malignant stage unspecified [Recovered/Resolved]
  - Lip haemorrhage [Recovered/Resolved]
  - Melanocytic naevus [Recovered/Resolved]
  - Diverticulitis [Unknown]
  - Abdominal discomfort [Not Recovered/Not Resolved]
  - Seborrhoeic keratosis [Recovered/Resolved]
  - Seborrhoeic keratosis [Not Recovered/Not Resolved]
  - Papule [Unknown]

NARRATIVE: CASE EVENT DATE: 20190601
